FAERS Safety Report 15641695 (Version 1)
Quarter: 2018Q4

REPORT INFORMATION
  Report Type: Spontaneous
  Country: US (occurrence: US)
  Receive Date: 20181121
  Receipt Date: 20181121
  Transmission Date: 20190205
  Serious: No
  Sender: FDA-Public Use
  Company Number: US-ACCORD-072603

PATIENT
  Age: 62 Year
  Sex: Female
  Weight: 58.97 kg

DRUGS (10)
  1. DIAZEPAM. [Concomitant]
     Active Substance: DIAZEPAM
     Dosage: 10 MG PRN
  2. BUPROPION. [Concomitant]
     Active Substance: BUPROPION
     Dosage: UNKNOWN DOSAGE QD
  3. DICLOFENAC [Concomitant]
     Active Substance: DICLOFENAC
     Dosage: 1.3 MG Q12H
  4. HYDROCHLOROTHIAZIDE. [Suspect]
     Active Substance: HYDROCHLOROTHIAZIDE
     Indication: HYPERTENSION
     Dosage: 12.5 MG/PO/QD
     Route: 048
  5. FAMOTIDINE. [Concomitant]
     Active Substance: FAMOTIDINE
     Dosage: 20 MG BID
  6. ASCORBIC ACID. [Concomitant]
     Active Substance: ASCORBIC ACID
  7. SPIRULINA SPP. [Concomitant]
  8. CURCUMA LONGA [Concomitant]
     Active Substance: HERBALS\TURMERIC
     Dosage: 500 MG QD
  9. COLECALCIFEROL [Concomitant]
     Active Substance: CHOLECALCIFEROL
     Dosage: 2000 IU QD
  10. FETZIMA [Concomitant]
     Active Substance: LEVOMILNACIPRAN HYDROCHLORIDE
     Dosage: 80 MG QD

REACTIONS (2)
  - Breast swelling [Recovered/Resolved]
  - Abdominal distension [Not Recovered/Not Resolved]

NARRATIVE: CASE EVENT DATE: 201808
